FAERS Safety Report 19015581 (Version 1)
Quarter: 2021Q1

REPORT INFORMATION
  Report Type: Report from Study
  Country: CA (occurrence: CA)
  Receive Date: 20210316
  Receipt Date: 20210316
  Transmission Date: 20210420
  Serious: Yes (Hospitalization)
  Sender: FDA-Public Use
  Company Number: CA-PFIZER INC-2021239975

PATIENT
  Sex: Female

DRUGS (14)
  1. BENADRYL [Concomitant]
     Active Substance: DIPHENHYDRAMINE HYDROCHLORIDE
     Indication: PREMEDICATION
     Dosage: 50 MG
     Route: 048
  2. CETIRIZINE [Concomitant]
     Active Substance: CETIRIZINE HYDROCHLORIDE
     Dosage: UNK
  3. FOLIC ACID. [Concomitant]
     Active Substance: FOLIC ACID
     Dosage: UNK
  4. PREDNISONE. [Concomitant]
     Active Substance: PREDNISONE
     Dosage: UNK
  5. RITUXIMAB. [Suspect]
     Active Substance: RITUXIMAB
     Indication: RHEUMATOID ARTHRITIS
     Dosage: 100 MG, 1 EVERY 15 DAYS
     Route: 042
  6. WARFARIN [Suspect]
     Active Substance: WARFARIN
     Dosage: UNK
     Route: 065
  7. METHYLPREDNISOLONE SODIUM SUCCINATE. [Concomitant]
     Active Substance: METHYLPREDNISOLONE SODIUM SUCCINATE
     Indication: PREMEDICATION
     Dosage: 100 MG
     Route: 042
  8. ACETAMINOPHEN. [Concomitant]
     Active Substance: ACETAMINOPHEN
     Dosage: UNK
  9. METHOTREXATE. [Concomitant]
     Active Substance: METHOTREXATE
     Route: 037
  10. RABEPRAZOLE [Concomitant]
     Active Substance: RABEPRAZOLE
     Dosage: UNK
  11. VENLAFAXINE [Concomitant]
     Active Substance: VENLAFAXINE HYDROCHLORIDE
     Dosage: UNK
  12. INNOHEP [Concomitant]
     Active Substance: TINZAPARIN SODIUM
     Dosage: UNK
  13. SALBUTAMOL [Concomitant]
     Active Substance: ALBUTEROL
     Dosage: UNK
     Route: 065
  14. TYLENOL [Concomitant]
     Active Substance: ACETAMINOPHEN
     Indication: PREMEDICATION
     Dosage: 650 MG
     Route: 048

REACTIONS (4)
  - Intracardiac thrombus [Unknown]
  - Deep vein thrombosis [Unknown]
  - Pulmonary thrombosis [Unknown]
  - Nausea [Unknown]
